FAERS Safety Report 8173596-4 (Version None)
Quarter: 2012Q1

REPORT INFORMATION
  Report Type: 
  Country: None (occurrence: None)
  Receive Date: 20120229
  Receipt Date: 20120218
  Transmission Date: 20120608
  Serious: Yes (Other)
  Sender: FDA-Public Use
  Company Number: DE-PFIZER INC-2012051151

PATIENT
  Age: 43 Year
  Sex: Female

DRUGS (6)
  1. ATARAX [Suspect]
     Dosage: 350 MG, SINGLE, INGESTION NOT ASSURED.
     Route: 048
     Dates: start: 20120201, end: 20120201
  2. CHLORPROTHIXENE [Suspect]
     Dosage: 150 MG, SINGLE, INGESTION NOT ASSURED
     Route: 048
     Dates: start: 20120201, end: 20120201
  3. IBUPROFEN [Suspect]
     Dosage: 1200 MG, SINGLE, INGESTION NOT ASSURED
     Route: 048
     Dates: start: 20120201, end: 20120201
  4. CLOPIDOGREL [Suspect]
     Dosage: 750 MG, SINGLE, NOT ASSURED
     Route: 048
     Dates: start: 20120201, end: 20120201
  5. ENOXAPARIN SODIUM [Suspect]
     Dosage: 80 MG, SINGLE
     Dates: start: 20120201, end: 20120201
  6. MELPERONE [Suspect]
     Dosage: 15 DF, SINGLE, INGESTION NOT ASSURED
     Route: 048
     Dates: start: 20120201, end: 20120201

REACTIONS (4)
  - SUICIDE ATTEMPT [None]
  - OVERDOSE [None]
  - VOMITING [None]
  - SOMNOLENCE [None]
